FAERS Safety Report 24574451 (Version 2)
Quarter: 2024Q4

REPORT INFORMATION
  Report Type: Other
  Country: CA (occurrence: CA)
  Receive Date: 20241104
  Receipt Date: 20241108
  Transmission Date: 20250114
  Serious: Yes (Death, Other)
  Sender: APOTEX
  Company Number: CA-APOTEX-2024AP017208

PATIENT
  Sex: Male

DRUGS (1)
  1. POMALIDOMIDE [Suspect]
     Active Substance: POMALIDOMIDE
     Indication: Plasma cell myeloma refractory
     Dosage: 4 MILLIGRAM
     Route: 048
     Dates: start: 20230210

REACTIONS (1)
  - Plasma cell myeloma [Fatal]
